FAERS Safety Report 8338066-9 (Version None)
Quarter: 2012Q1

REPORT INFORMATION
  Report Type: 
  Country: None (occurrence: None)
  Receive Date: 20120329
  Receipt Date: 20110105
  Transmission Date: 20120608
  Serious: Yes (Other)
  Sender: FDA-Public Use
  Company Number: PHHY2010US89316

PATIENT
  Age: 79 Year
  Sex: Female

DRUGS (7)
  1. SYNTHROID [Concomitant]
  2. SIMVASTATIN [Concomitant]
  3. EXELON [Suspect]
     Indication: DEMENTIA
     Dosage: 4.6 MG, QD, TRANSDERMAL
     Route: 062
     Dates: start: 20101004, end: 20101225
  4. MELOXICAM [Concomitant]
  5. LORAZEPAM [Concomitant]
  6. ASPIRIN [Concomitant]
  7. OMEPRAZOLE [Concomitant]

REACTIONS (5)
  - APPLICATION SITE WARMTH [None]
  - APPLICATION SITE HYPERSENSITIVITY [None]
  - APPLICATION SITE ERYTHEMA [None]
  - APPLICATION SITE PRURITUS [None]
  - RASH [None]
